FAERS Safety Report 23091276 (Version 3)
Quarter: 2024Q1

REPORT INFORMATION
  Report Type: Report from Study
  Country: JP (occurrence: JP)
  Receive Date: 20231020
  Receipt Date: 20240209
  Transmission Date: 20240410
  Serious: Yes (Other)
  Sender: FDA-Public Use
  Company Number: JP-ONO-2023JP025793

PATIENT
  Age: 63 Year
  Sex: Male
  Weight: 70.3 kg

DRUGS (5)
  1. BRAFTOVI [Suspect]
     Active Substance: ENCORAFENIB
     Indication: Colon cancer
     Dosage: 300 MG, DAILY
     Route: 048
     Dates: start: 20221011, end: 20230131
  2. MEKTOVI [Suspect]
     Active Substance: BINIMETINIB
     Indication: Colon cancer
     Dosage: 90 MG, DAILY
     Route: 048
     Dates: start: 20221011, end: 20230124
  3. MEKTOVI [Suspect]
     Active Substance: BINIMETINIB
     Dosage: 60 MG, DAILY
     Route: 048
     Dates: start: 20230125, end: 20230131
  4. ERBITUX [Suspect]
     Active Substance: CETUXIMAB
     Indication: Colon cancer
     Dosage: 400 MG/M2
     Route: 065
     Dates: start: 20221011, end: 20221011
  5. ERBITUX [Suspect]
     Active Substance: CETUXIMAB
     Dosage: 250 MG/M2
     Route: 065
     Dates: start: 20221018, end: 20230124

REACTIONS (1)
  - Erythema multiforme [Not Recovered/Not Resolved]

NARRATIVE: CASE EVENT DATE: 20230110
